FAERS Safety Report 4727568-X (Version None)
Quarter: 2005Q3

REPORT INFORMATION
  Report Type: 
  Country: None (occurrence: None)
  Receive Date: 20050728
  Receipt Date: 20050207
  Transmission Date: 20060218
  Serious: Yes (Hospitalization, Disabling)
  Sender: FDA-Public Use
  Company Number: US-BRISTOL-MYERS SQUIBB COMPANY-12852299

PATIENT
  Sex: Male

DRUGS (3)
  1. ZERIT [Suspect]
     Dates: start: 20010401, end: 20030301
  2. COMBIVIR [Suspect]
     Dates: start: 20010301
  3. EPIVIR [Suspect]
     Dates: start: 20010401, end: 20030101

REACTIONS (3)
  - NEUROPATHY PERIPHERAL [None]
  - PAIN [None]
  - PARAESTHESIA [None]
